FAERS Safety Report 21144579 (Version 6)
Quarter: 2023Q2

REPORT INFORMATION
  Report Type: Report from Study
  Country: US (occurrence: US)
  Receive Date: 20220728
  Receipt Date: 20230609
  Transmission Date: 20230722
  Serious: Yes (Other)
  Sender: FDA-Public Use
  Company Number: US-NOVARTISTESTPH-NVSC2022US170829

PATIENT
  Age: 57 Year
  Sex: Female

DRUGS (3)
  1. LEQVIO [Suspect]
     Active Substance: INCLISIRAN SODIUM
     Indication: Product used for unknown indication
     Dosage: UNK (FIRST INJECTION)
     Route: 058
     Dates: start: 20220701
  2. LEQVIO [Suspect]
     Active Substance: INCLISIRAN SODIUM
     Dosage: UNK (SECOND INJECTION)
     Route: 058
     Dates: start: 20221003
  3. LEQVIO [Suspect]
     Active Substance: INCLISIRAN SODIUM
     Dosage: UNK (THIRD INJECTION)
     Route: 058
     Dates: start: 20230407

REACTIONS (3)
  - Coronary artery occlusion [Unknown]
  - Low density lipoprotein increased [Unknown]
  - Injection site pain [Unknown]

NARRATIVE: CASE EVENT DATE: 20220701
